FAERS Safety Report 8824530 (Version 1)
Quarter: 2012Q4

REPORT INFORMATION
  Report Type: 
  Country: AU (occurrence: AU)
  Receive Date: 20121004
  Receipt Date: 20121004
  Transmission Date: 20130627
  Serious: Yes (Hospitalization, Other)
  Sender: FDA-Public Use
  Company Number: PHHY2012AU037717

PATIENT
  Sex: Male

DRUGS (2)
  1. ACLASTA [Suspect]
     Dosage: UNK UKN, UNK
     Route: 042
     Dates: start: 2011
  2. ANTIBIOTICS [Concomitant]

REACTIONS (9)
  - Atrial fibrillation [Unknown]
  - Heart rate abnormal [Not Recovered/Not Resolved]
  - Sarcoidosis [Unknown]
  - Cough [Unknown]
  - Increased upper airway secretion [Unknown]
  - Diarrhoea [Unknown]
  - Sensitivity of teeth [Unknown]
  - Nausea [Unknown]
  - Malaise [Unknown]
